FAERS Safety Report 19787582 (Version 1)
Quarter: 2021Q3

REPORT INFORMATION
  Report Type: Spontaneous
  Country: US (occurrence: US)
  Receive Date: 20210830
  Receipt Date: 20210830
  Transmission Date: 20211014
  Serious: No
  Sender: FDA-Public Use
  Company Number: None

PATIENT
  Age: 68 Year
  Sex: Female
  Weight: 81 kg

DRUGS (3)
  1. VITAMIN B12 SHOTS [Concomitant]
  2. RITUXAN [Suspect]
     Active Substance: RITUXIMAB
     Indication: RHEUMATOID ARTHRITIS
     Dosage: ?          OTHER STRENGTH:STRONG;QUANTITY:1 INFUSION;OTHER FREQUENCY:EVERY 6 MONTHS;OTHER ROUTE:INFUSION?
     Dates: start: 20210520
  3. VITAMIN D [Concomitant]
     Active Substance: VITAMIN D NOS

REACTIONS (1)
  - Manufacturing laboratory analytical testing issue [None]

NARRATIVE: CASE EVENT DATE: 20210510
